FAERS Safety Report 6692749-5 (Version None)
Quarter: 2010Q2

REPORT INFORMATION
  Report Type: 
  Country: None (occurrence: None)
  Receive Date: 20100422
  Receipt Date: 20100417
  Transmission Date: 20101027
  Serious: Yes (Hospitalization, Other)
  Sender: FDA-Public Use
  Company Number: PHHY2010US24534

PATIENT
  Sex: Female
  Weight: 56.62 kg

DRUGS (3)
  1. EXJADE [Suspect]
     Indication: IRON METABOLISM DISORDER
     Dosage: 500 MG, BID
     Route: 048
     Dates: start: 20091119
  2. LEVOTHYROXINE [Concomitant]
  3. NEXIUM [Concomitant]

REACTIONS (2)
  - DIABETES MELLITUS [None]
  - SEPSIS [None]
